FAERS Safety Report 9790051 (Version 2)
Quarter: 2013Q4

REPORT INFORMATION
  Report Type: Spontaneous
  Country: US (occurrence: US)
  Receive Date: 20131231
  Receipt Date: 20131231
  Transmission Date: 20140711
  Serious: Yes (Hospitalization, Other)
  Sender: FDA-Public Use
  Company Number: US-SA-FABR-1003432

PATIENT
  Age: 38 Year
  Sex: Male
  Weight: 108 kg

DRUGS (35)
  1. AGALSIDASE BETA [Suspect]
     Indication: FABRY^S DISEASE
     Dosage: 0.49 MG/KG, 1X/W
     Route: 042
     Dates: start: 20051024
  2. ASPIRIN [Concomitant]
  3. DILANTIN [Concomitant]
  4. LISINOPRIL [Concomitant]
  5. METOPROLOL [Concomitant]
  6. OXYCONTIN [Concomitant]
  7. LACTOFERRIN [Concomitant]
  8. AMITRIPTYLINE [Concomitant]
     Route: 048
  9. CALCITRIOL [Concomitant]
     Route: 048
  10. CALCIUM CARBONATE [Concomitant]
     Route: 048
  11. CALCIUM CHLORIDE ANHYDROUS [Concomitant]
     Route: 042
  12. CALCIUM GLUCONATE [Concomitant]
     Route: 042
  13. POLYSORBATE 80 [Concomitant]
     Route: 042
  14. DOCUSATE SODIUM [Concomitant]
     Route: 048
  15. ERGOCALCIFEROL [Concomitant]
     Dosage: DOSE:50000 UNIT(S)
     Route: 048
  16. FERRIC SODIUM GLUCONATE COMPLEX [Concomitant]
     Route: 042
  17. FOLIC ACID [Concomitant]
     Route: 048
  18. GABAPENTIN [Concomitant]
     Route: 048
  19. HEPARIN [Concomitant]
     Dosage: DOSE:5000 UNIT(S)
     Route: 058
  20. HEPARIN [Concomitant]
     Dosage: DOSE:1000 UNIT(S)
     Route: 042
  21. DILAUDID [Concomitant]
     Route: 042
  22. LIOTHYRONINE [Concomitant]
  23. LISINOPRIL [Concomitant]
     Route: 048
  24. METOPROLOL TARTRATE [Concomitant]
     Route: 048
  25. MULTIVITAMINS [Concomitant]
     Route: 048
  26. NICOTINE [Concomitant]
     Route: 062
  27. PANTOPRAZOLE [Concomitant]
     Route: 048
  28. PHENYTOIN [Concomitant]
     Route: 048
  29. SENNA [Concomitant]
     Route: 048
  30. SODIUM CHLORIDE [Concomitant]
     Route: 042
  31. SODIUM CHLORIDE [Concomitant]
  32. ACETAMINOPHEN [Concomitant]
  33. ALBUTEROL W/IPRATROPIUM [Concomitant]
  34. NITROGLYCERIN ^SLOVAKOFARMA^ [Concomitant]
  35. OXYCODONE [Concomitant]

REACTIONS (9)
  - Hip fracture [Not Recovered/Not Resolved]
  - Hip fracture [Not Recovered/Not Resolved]
  - Osteoporosis [Unknown]
  - Hyperparathyroidism [Not Recovered/Not Resolved]
  - Thyroid neoplasm [Recovered/Resolved with Sequelae]
  - Lymphoedema [Recovered/Resolved with Sequelae]
  - Leg amputation [Unknown]
  - Femoral neck fracture [Unknown]
  - Pain [Recovered/Resolved]
